FAERS Safety Report 23441674 (Version 3)
Quarter: 2024Q4

REPORT INFORMATION
  Report Type: Report from Study
  Country: ES (occurrence: ES)
  Receive Date: 20240125
  Receipt Date: 20241106
  Transmission Date: 20250115
  Serious: Yes (Disabling, Other)
  Sender: AMNEAL
  Company Number: ES-AMNEAL PHARMACEUTICALS-2023-AMRX-04670

PATIENT

DRUGS (5)
  1. ONGENTYS [Suspect]
     Active Substance: OPICAPONE
     Indication: Parkinson^s disease
     Dosage: 50 MILLIGRAM, 1 /DAY
     Route: 065
     Dates: start: 20221003
  2. CARBIDOPA\LEVODOPA [Concomitant]
     Active Substance: CARBIDOPA\LEVODOPA
     Indication: Parkinson^s disease
     Dosage: 100/25 MG, 4 TIMES/DAY, (TOTAL DAILY DOSE OF LEVODOPA: 400 MG)
     Route: 065
     Dates: start: 20210414
  3. ROPINIROLE [Concomitant]
     Active Substance: ROPINIROLE
     Indication: Parkinson^s disease
     Dosage: 8 MILLIGRAM, 1 /DAY
     Route: 065
     Dates: start: 20200201
  4. RASAGILINE [Concomitant]
     Active Substance: RASAGILINE
     Indication: Parkinson^s disease
     Dosage: 1 MILLIGRAM, 1 /DAY
     Route: 065
     Dates: start: 20210201
  5. CLONAZEPAM [Concomitant]
     Active Substance: CLONAZEPAM
     Indication: Rapid eye movement sleep behaviour disorder
     Dosage: UNK
     Route: 065
     Dates: start: 20220404

REACTIONS (14)
  - Dystonia [Not Recovered/Not Resolved]
  - Glaucoma [Not Recovered/Not Resolved]
  - COVID-19 [Recovered/Resolved]
  - Neuralgia [Recovered/Resolved]
  - Actinic keratosis [Recovered/Resolved]
  - Vitamin B12 deficiency [Recovered/Resolved]
  - Exeresis [Recovered/Resolved]
  - Conjunctivitis [Recovered/Resolved]
  - Inguinal hernia [Not Recovered/Not Resolved]
  - Cataract [Recovered/Resolved]
  - Abdominal discomfort [Recovered/Resolved]
  - Constipation [Not Recovered/Not Resolved]
  - Dyskinesia [Not Recovered/Not Resolved]
  - Dyskinesia [Unknown]

NARRATIVE: CASE EVENT DATE: 20221115
